FAERS Safety Report 7636784-9 (Version None)
Quarter: 2011Q3

REPORT INFORMATION
  Report Type: 
  Country: None (occurrence: None)
  Receive Date: 20110726
  Receipt Date: 20110607
  Transmission Date: 20111222
  Serious: No
  Sender: FDA-Public Use
  Company Number: US-BAYER-2011-050018

PATIENT
  Age: 82 Year
  Sex: Male
  Weight: 59 kg

DRUGS (2)
  1. ALEVE (CAPLET) [Suspect]
     Indication: ARTHRITIS
     Dosage: 1 DF, BID
     Route: 048
     Dates: start: 20100215, end: 20100217
  2. SYNTHROID [Concomitant]
     Dosage: UNK

REACTIONS (2)
  - PRURITUS [None]
  - URTICARIA [None]
